FAERS Safety Report 5780353-2 (Version None)
Quarter: 2008Q2

REPORT INFORMATION
  Report Type: 
  Country: None (occurrence: None)
  Receive Date: 20080620
  Receipt Date: 20080611
  Transmission Date: 20081010
  Serious: Yes (Congenital Anomaly)
  Sender: FDA-Public Use
  Company Number: B0524846A

PATIENT
  Sex: Male

DRUGS (1)
  1. LAMICTAL [Suspect]
     Dates: end: 20080404

REACTIONS (2)
  - DRUG EXPOSURE DURING PREGNANCY [None]
  - NAEVUS FLAMMEUS [None]
